FAERS Safety Report 5151530-9 (Version None)
Quarter: 2006Q4

REPORT INFORMATION
  Report Type: 
  Country: None (occurrence: None)
  Receive Date: 20061114
  Receipt Date: 20061114
  Transmission Date: 20070319
  Serious: Yes (Life-Threatening)
  Sender: FDA-Public Use
  Company Number: None

PATIENT
  Sex: Male
  Weight: 106 kg

DRUGS (2)
  1. ZOSYN [Suspect]
     Indication: FISTULA
     Dosage: 3.375G Q6 H IV
     Route: 042
     Dates: start: 20060807, end: 20060824
  2. ZOSYN [Suspect]
     Indication: LIVER ABSCESS
     Dosage: 3.375G Q6 H IV
     Route: 042
     Dates: start: 20060807, end: 20060824

REACTIONS (1)
  - NEUTROPENIA [None]
